APPROVED DRUG PRODUCT: XIFAXAN
Active Ingredient: RIFAXIMIN
Strength: 550MG
Dosage Form/Route: TABLET;ORAL
Application: N021361 | Product #002
Applicant: SALIX PHARMACEUTICALS INC
Approved: Mar 24, 2010 | RLD: Yes | RS: Yes | Type: RX

PATENTS:
Patent 8193196 | Expires: Sep 2, 2027
Patent 8193196 | Expires: Sep 2, 2027
Patent 8309569 | Expires: Jul 18, 2029
Patent 8309569 | Expires: Jul 18, 2029
Patent 8741904 | Expires: Feb 27, 2026
Patent 8741904 | Expires: Feb 27, 2026
Patent 8829017 | Expires: Jul 24, 2029
Patent 8642573 | Expires: Oct 2, 2029
Patent 9421195 | Expires: Jul 24, 2029
Patent 8969398 | Expires: Oct 2, 2029
Patent 8946252 | Expires: Jul 24, 2029
Patent 10335397 | Expires: Jul 24, 2029
Patent 10456384 | Expires: Feb 26, 2029
Patent 10456384 | Expires: Feb 26, 2029
Patent 9629828 | Expires: Jul 24, 2029
Patent 10314828 | Expires: Jul 24, 2029
Patent 10703763 | Expires: Feb 27, 2026
Patent 10703763 | Expires: Feb 27, 2026
Patent 10765667 | Expires: Feb 26, 2029
Patent 10765667 | Expires: Feb 26, 2029
Patent 10709694 | Expires: Jul 24, 2029
Patent 8741904 | Expires: Feb 27, 2026
Patent 11779571 | Expires: Feb 26, 2029
Patent 11564912 | Expires: Feb 26, 2029
Patent 11564912 | Expires: Feb 26, 2029
Patent 8518949 | Expires: Feb 27, 2026
Patent 9271968 | Expires: Feb 27, 2026